FAERS Safety Report 15006556 (Version 1)
Quarter: 2018Q2

REPORT INFORMATION
  Report Type: Report from Study
  Country: US (occurrence: US)
  Receive Date: 20180613
  Receipt Date: 20180613
  Transmission Date: 20180711
  Serious: No
  Sender: FDA-Public Use
  Company Number: US-US WORLDMEDS, LLC-USW201708-001243

PATIENT
  Age: 77 Year
  Sex: Male
  Weight: 72.57 kg

DRUGS (10)
  1. ESCITALOPRAM [Concomitant]
     Active Substance: ESCITALOPRAM OXALATE
  2. ASA [Concomitant]
     Active Substance: ASPIRIN
  3. DONEPEZIL. [Concomitant]
     Active Substance: DONEPEZIL
  4. CLONAZEPAM. [Concomitant]
     Active Substance: CLONAZEPAM
  5. FERROUS SULFATE M,W,F [Concomitant]
  6. DOCUSATE SODIUM. [Concomitant]
     Active Substance: DOCUSATE SODIUM
     Indication: CONSTIPATION
  7. TIGAN [Concomitant]
     Active Substance: TRIMETHOBENZAMIDE HYDROCHLORIDE
     Indication: NAUSEA
     Dates: start: 20170819
  8. CARBIDOPA/LEVODOPA [Concomitant]
     Active Substance: CARBIDOPA\LEVODOPA
     Indication: PARKINSON^S DISEASE
  9. APOKYN [Suspect]
     Active Substance: APOMORPHINE HYDROCHLORIDE
     Indication: PARKINSON^S DISEASE
     Route: 058
     Dates: start: 20170823
  10. ROPINIROLE. [Concomitant]
     Active Substance: ROPINIROLE

REACTIONS (2)
  - Somnolence [Recovered/Resolved]
  - Sinus congestion [Recovered/Resolved]

NARRATIVE: CASE EVENT DATE: 20170823
